FAERS Safety Report 25481678 (Version 1)
Quarter: 2025Q2

REPORT INFORMATION
  Report Type: Report from Study
  Country: US (occurrence: US)
  Receive Date: 20250626
  Receipt Date: 20250626
  Transmission Date: 20250717
  Serious: Yes (Hospitalization)
  Sender: ROCHE
  Company Number: US-ROCHE-10000318970

PATIENT
  Age: 41 Year
  Sex: Female

DRUGS (41)
  1. OCRELIZUMAB [Suspect]
     Active Substance: OCRELIZUMAB
     Indication: Multiple sclerosis
     Route: 065
     Dates: start: 20200722
  2. OCRELIZUMAB [Suspect]
     Active Substance: OCRELIZUMAB
     Route: 065
     Dates: start: 20200812
  3. OCRELIZUMAB [Suspect]
     Active Substance: OCRELIZUMAB
     Route: 065
     Dates: start: 20210608
  4. OCRELIZUMAB [Suspect]
     Active Substance: OCRELIZUMAB
     Route: 065
     Dates: start: 20211217
  5. OCRELIZUMAB [Suspect]
     Active Substance: OCRELIZUMAB
     Route: 065
     Dates: start: 20220512
  6. OCRELIZUMAB [Suspect]
     Active Substance: OCRELIZUMAB
     Route: 065
     Dates: start: 20230310
  7. OCRELIZUMAB [Suspect]
     Active Substance: OCRELIZUMAB
     Route: 065
     Dates: start: 20240425
  8. OCRELIZUMAB [Suspect]
     Active Substance: OCRELIZUMAB
     Route: 065
     Dates: start: 20250331
  9. Bupropion  XL [Concomitant]
     Dates: start: 2012
  10. ESCITALOPRAM OXALATE [Concomitant]
     Active Substance: ESCITALOPRAM OXALATE
     Dates: start: 2012
  11. ESZOPICLONE [Concomitant]
     Active Substance: ESZOPICLONE
     Dates: start: 201606, end: 20230621
  12. MELATONIN [Concomitant]
     Active Substance: MELATONIN
     Dates: start: 2016, end: 20230313
  13. VITAMINS [Concomitant]
     Active Substance: VITAMINS
     Dates: start: 2012, end: 20220805
  14. OMEPRAZOLE [Concomitant]
     Active Substance: OMEPRAZOLE
     Dates: start: 2012
  15. ASPIRIN [Concomitant]
     Active Substance: ASPIRIN
     Dates: start: 2020, end: 20220111
  16. DEXAMETHASONE [Concomitant]
     Active Substance: DEXAMETHASONE
     Dates: start: 20220102, end: 20220111
  17. MONTELUKAST [Concomitant]
     Active Substance: MONTELUKAST
     Dates: start: 20220324
  18. ALBUTEROL SULFATE [Concomitant]
     Active Substance: ALBUTEROL SULFATE
     Dates: start: 20211229
  19. RIFAMPIN [Concomitant]
     Active Substance: RIFAMPIN
     Dates: start: 20220407, end: 20220409
  20. TRIAMCINOLONE [Concomitant]
     Active Substance: TRIAMCINOLONE
     Dates: start: 20220411, end: 20220805
  21. ESTRADIOL [Concomitant]
     Active Substance: ESTRADIOL
     Dates: start: 20120216, end: 20220805
  22. DOXYCYCLINE [Concomitant]
     Active Substance: DOXYCYCLINE
     Dates: start: 20200529, end: 20220805
  23. ENDOMETRIN [Concomitant]
     Active Substance: PROGESTERONE
     Dates: start: 20220428, end: 20220606
  24. PROMETRIUM [Concomitant]
     Active Substance: PROGESTERONE
     Dates: start: 20200831, end: 20220805
  25. BREOELLIPTA [Concomitant]
     Dates: start: 20220520, end: 20240925
  26. AMMONIUM LACTATE [Concomitant]
     Active Substance: AMMONIUM LACTATE
     Dates: start: 20220607
  27. EVUSHELD [Concomitant]
     Active Substance: CILGAVIMAB\TIXAGEVIMAB
     Dates: start: 20220902, end: 20220902
  28. BOOSTRIX [Concomitant]
     Active Substance: TETANUS TOXOID, REDUCED DIPHTHERIA TOXOID AND ACELLULAR PERTUSSIS VACCINE, ADSORBED ANTIGENS
     Dates: start: 20221216, end: 20221216
  29. ASTELIN [Concomitant]
     Active Substance: AZELASTINE HYDROCHLORIDE
     Route: 045
     Dates: start: 20230320, end: 20240916
  30. BACTRIM DS [Concomitant]
     Active Substance: SULFAMETHOXAZOLE\TRIMETHOPRIM
     Dates: start: 20230807, end: 20230817
  31. ISOVUE 370 [Concomitant]
     Active Substance: IOPAMIDOL
     Dates: start: 20231104, end: 20231104
  32. DILAUDID [Concomitant]
     Active Substance: HYDROMORPHONE HYDROCHLORIDE
     Dates: start: 20231104, end: 20231104
  33. TORADOL [Concomitant]
     Active Substance: KETOROLAC TROMETHAMINE
     Dates: start: 20231104, end: 20231104
  34. ZOFRAN [Concomitant]
     Active Substance: ONDANSETRON HYDROCHLORIDE
     Dates: start: 20231104, end: 20231104
  35. LACTATED RINGERS SOLUTION [Concomitant]
     Active Substance: CALCIUM CHLORIDE\POTASSIUM CHLORIDE\SODIUM CHLORIDE\SODIUM LACTATE
     Dates: start: 20231104, end: 20231104
  36. TESSALON [Concomitant]
     Active Substance: BENZONATATE
     Dates: start: 20231128, end: 202312
  37. AUGMENTIN [Concomitant]
     Active Substance: AMOXICILLIN\CLAVULANATE POTASSIUM
     Dates: start: 20231128, end: 202312
  38. VITAMINS [Concomitant]
     Active Substance: VITAMINS
     Dates: start: 20250204
  39. BUDESONIDE [Concomitant]
     Active Substance: BUDESONIDE
     Dates: start: 20240925
  40. CETIRIZINE [Concomitant]
     Active Substance: CETIRIZINE HYDROCHLORIDE
     Dates: start: 20250201, end: 20250203
  41. LABETALOL HYDROCHLORIDE [Concomitant]
     Active Substance: LABETALOL HYDROCHLORIDE
     Dates: start: 20250203, end: 20250430

REACTIONS (1)
  - Acute respiratory failure [Recovered/Resolved]

NARRATIVE: CASE EVENT DATE: 20220106
